FAERS Safety Report 10098821 (Version 1)
Quarter: 2014Q2

REPORT INFORMATION
  Report Type: Spontaneous
  Country: GB (occurrence: GB)
  Receive Date: 20140423
  Receipt Date: 20140423
  Transmission Date: 20141212
  Serious: Yes (Disabling, Other)
  Sender: FDA-Public Use
  Company Number: GB-BRISTOL-MYERS SQUIBB COMPANY-20637575

PATIENT
  Age: 34 Year
  Sex: Female
  Weight: 69.85 kg

DRUGS (2)
  1. ARIPIPRAZOLE [Suspect]
     Indication: PSYCHOTIC DISORDER
     Route: 048
     Dates: start: 20140101, end: 20140402
  2. FLUOXETINE [Concomitant]

REACTIONS (3)
  - Abdominal distension [Not Recovered/Not Resolved]
  - Dyspepsia [Unknown]
  - Vomiting [Not Recovered/Not Resolved]
